FAERS Safety Report 9602330 (Version 1)
Quarter: 2013Q4

REPORT INFORMATION
  Report Type: Spontaneous
  Country: US (occurrence: US)
  Receive Date: 20131007
  Receipt Date: 20131007
  Transmission Date: 20140711
  Serious: No
  Sender: FDA-Public Use
  Company Number: US-GLAXOSMITHKLINE-A1032659A

PATIENT
  Age: 44 Year
  Sex: Female

DRUGS (4)
  1. BENLYSTA [Suspect]
     Indication: SYSTEMIC LUPUS ERYTHEMATOSUS
     Dates: start: 20130425, end: 20130425
  2. IMURAN [Concomitant]
  3. PREDNISONE [Concomitant]
  4. WELLBUTRIN [Concomitant]

REACTIONS (5)
  - Hypersensitivity [Unknown]
  - Urticaria [Unknown]
  - Dyspnoea [Unknown]
  - Anxiety [Unknown]
  - Drug ineffective [Unknown]
